FAERS Safety Report 6219614-1 (Version None)
Quarter: 2009Q2

REPORT INFORMATION
  Report Type: 
  Country: None (occurrence: None)
  Receive Date: 20090609
  Receipt Date: 20090602
  Transmission Date: 20091009
  Serious: Yes (Other)
  Sender: FDA-Public Use
  Company Number: PHEH2009US05617

PATIENT
  Age: 87 Year
  Sex: Male

DRUGS (3)
  1. TEKTURNA [Suspect]
     Dosage: 150 MG, UNK
  2. MICARDIS [Suspect]
     Dosage: UNK, UNK
  3. TOPROL-XL [Suspect]
     Dosage: UNK, UNK

REACTIONS (2)
  - MACULAR DEGENERATION [None]
  - VISION BLURRED [None]
